FAERS Safety Report 21035637 (Version 1)
Quarter: 2022Q3

REPORT INFORMATION
  Report Type: Spontaneous
  Country: US (occurrence: US)
  Receive Date: 20220701
  Receipt Date: 20220701
  Transmission Date: 20221026
  Serious: Yes (Other)
  Sender: FDA-Public Use
  Company Number: US-PFIZER INC-202200912862

PATIENT
  Sex: Female

DRUGS (1)
  1. PAXLOVID [Suspect]
     Active Substance: NIRMATRELVIR\RITONAVIR
     Indication: COVID-19 treatment
     Dosage: UNK
     Dates: end: 2022

REACTIONS (4)
  - Dementia Alzheimer^s type [Unknown]
  - Rash [Not Recovered/Not Resolved]
  - Rash pruritic [Unknown]
  - Overdose [Unknown]
